FAERS Safety Report 6651384-5 (Version None)
Quarter: 2010Q1

REPORT INFORMATION
  Report Type: 
  Country: None (occurrence: None)
  Receive Date: 20100325
  Receipt Date: 20100316
  Transmission Date: 20100710
  Serious: Yes (Other)
  Sender: FDA-Public Use
  Company Number: US-SANOFI-AVENTIS-2010SA009774

PATIENT
  Age: 80 Year
  Sex: Female
  Weight: 64 kg

DRUGS (6)
  1. MULTAQ [Suspect]
     Route: 048
     Dates: start: 20091217, end: 20100209
  2. DIGOXIN [Concomitant]
     Route: 048
  3. CARVEDILOL [Concomitant]
     Route: 065
  4. ZESTRIL [Concomitant]
     Route: 065
  5. FUROSEMIDE [Concomitant]
     Route: 065
  6. WARFARIN SODIUM [Concomitant]

REACTIONS (3)
  - CARDIAC FAILURE CONGESTIVE [None]
  - CARDIOMYOPATHY [None]
  - DYSPNOEA [None]
